FAERS Safety Report 23338928 (Version 1)
Quarter: 2023Q4

REPORT INFORMATION
  Report Type: Report from Study
  Country: US (occurrence: US)
  Receive Date: 20231226
  Receipt Date: 20231226
  Transmission Date: 20240109
  Serious: Yes (Hospitalization, Other)
  Sender: FDA-Public Use
  Company Number: US-SA-SAC20230512001100

PATIENT
  Age: 66 Year
  Sex: Male

DRUGS (15)
  1. BELUMOSUDIL MESYLATE [Suspect]
     Active Substance: BELUMOSUDIL MESYLATE
     Indication: Stem cell transplant
     Dosage: 200 MG, QD
     Route: 048
     Dates: start: 2022
  2. BELUMOSUDIL MESYLATE [Suspect]
     Active Substance: BELUMOSUDIL MESYLATE
     Indication: Graft versus host disease
     Dosage: 200 MG, QD
     Route: 048
     Dates: start: 20230113
  3. TYRVAYA [Concomitant]
     Active Substance: VARENICLINE TARTRATE
     Dosage: UNK, BID
  4. ATOVAQUONE [Concomitant]
     Active Substance: ATOVAQUONE
     Dosage: 1500 MG, QD
  5. ENOXAPARIN [Concomitant]
     Active Substance: ENOXAPARIN
     Dosage: UNK
  6. FINASTERIDE [Concomitant]
     Active Substance: FINASTERIDE
     Dosage: 5 MG, QD
  7. OLANZAPINE [Concomitant]
     Active Substance: OLANZAPINE
     Dosage: 2.5 UNK, BID
  8. ROPINIROLE [Concomitant]
     Active Substance: ROPINIROLE
     Dosage: 4 MG, BID
  9. RUXOLITINIB [Concomitant]
     Active Substance: RUXOLITINIB
     Dosage: UNK
  10. SERTRALINE [Concomitant]
     Active Substance: SERTRALINE HYDROCHLORIDE
     Dosage: 50 MG, QD
  11. TAMSULOSIN [Concomitant]
     Active Substance: TAMSULOSIN
     Dosage: 0.5 MG, QD
  12. VALACYCLOVIR [Concomitant]
     Active Substance: VALACYCLOVIR HYDROCHLORIDE
     Dosage: 500 MG, BID
  13. PREDNISONE [Concomitant]
     Active Substance: PREDNISONE
     Dosage: 10 MG, QD
  14. ELIQUIS [Concomitant]
     Active Substance: APIXABAN
     Dosage: 5 MG, BID
  15. AXATILIMAB [Concomitant]
     Active Substance: AXATILIMAB
     Dosage: UNK, QOW

REACTIONS (11)
  - Compartment syndrome [Recovered/Resolved]
  - Haematoma [Recovered/Resolved]
  - Atrial fibrillation [Unknown]
  - Graft versus host disease [Unknown]
  - Condition aggravated [Unknown]
  - Joint range of motion decreased [Unknown]
  - Peripheral swelling [Unknown]
  - Dyspnoea [Unknown]
  - Nausea [Unknown]
  - Diarrhoea [Unknown]
  - Product use in unapproved indication [Unknown]

NARRATIVE: CASE EVENT DATE: 20230113
